FAERS Safety Report 15196311 (Version 1)
Quarter: 2018Q3

REPORT INFORMATION
  Report Type: Spontaneous
  Country: US (occurrence: US)
  Receive Date: 20180626
  Receipt Date: 20180626
  Transmission Date: 20181010
  Serious: Yes (Other)
  Sender: FDA-Public Use
  Company Number: None

PATIENT
  Sex: Female
  Weight: 155.25 kg

DRUGS (14)
  1. BUPRENORPHINE?NALOXONE [Suspect]
     Active Substance: BUPRENORPHINE HYDROCHLORIDE\NALOXONE HYDROCHLORIDE
     Indication: DRUG USE DISORDER
     Route: 060
     Dates: start: 20170601, end: 20180626
  2. ATORVASTATIN 40MG TABLET [Concomitant]
     Active Substance: ATORVASTATIN
     Dates: start: 20180123
  3. OLANZAPINE 15MG TABLET [Concomitant]
     Active Substance: OLANZAPINE
     Dates: start: 20180117
  4. OXTELLAR XR (OXCARBAZEPINE) 300 MG EXTENDED?RELEASE TABLET [Concomitant]
     Dates: start: 20180316, end: 20180510
  5. OXCARBAZEPINE 300 MG TABLET [Concomitant]
     Dates: start: 20180117, end: 20180501
  6. CLONIDINE HCL 0.1MG TABLET [Concomitant]
     Dates: start: 20170712, end: 20170719
  7. METFORMIN 500MG TABLET [Concomitant]
     Dates: start: 20180123
  8. LISINOPRIL 10MG TABLET [Concomitant]
     Dates: start: 20180123
  9. HUMALOG INSULIN PEN 100UNIT/ML [Concomitant]
     Dates: start: 20180123
  10. HYDROXYZINE HCL 25MG TABLET [Concomitant]
     Dates: start: 20170923, end: 20170927
  11. VALACYCLOVIR 1GRAM TABLET [Concomitant]
     Dates: start: 20170719, end: 20170809
  12. OXTELLAR XR (OXCARBAZEPINE) 600 MG EXTENDED?RELEASE TABLET [Concomitant]
     Dates: start: 20180511
  13. GABAPENTIN 400MG CAPSULE [Concomitant]
     Dates: start: 20170601
  14. OLANZAPINE 10MG TABLET [Concomitant]
     Dates: start: 20170606, end: 20170820

REACTIONS (3)
  - Retching [None]
  - Vomiting [None]
  - Malabsorption [None]
